FAERS Safety Report 11969175 (Version 2)
Quarter: 2016Q1

REPORT INFORMATION
  Report Type: Report from Study
  Country: CA (occurrence: CA)
  Receive Date: 20160128
  Receipt Date: 20160204
  Transmission Date: 20160526
  Serious: Yes (Other)
  Sender: FDA-Public Use
  Company Number: CA-ROCHE-1623655

PATIENT
  Age: 65 Year
  Sex: Female

DRUGS (4)
  1. FLECAINIDE [Concomitant]
     Active Substance: FLECAINIDE
  2. ACETAMINOPHEN. [Concomitant]
     Active Substance: ACETAMINOPHEN
     Route: 048
     Dates: start: 20150818
  3. XARELTO [Concomitant]
     Active Substance: RIVAROXABAN
  4. AVASTIN [Suspect]
     Active Substance: BEVACIZUMAB
     Indication: OVARIAN CANCER
     Route: 042
     Dates: start: 20150818, end: 20151222

REACTIONS (15)
  - Lymphocyte count increased [Unknown]
  - Proteinuria [Not Recovered/Not Resolved]
  - Blood pressure increased [Not Recovered/Not Resolved]
  - Mean cell haemoglobin concentration decreased [Unknown]
  - Eosinophil count increased [Unknown]
  - Red cell distribution width increased [Unknown]
  - Oxygen saturation decreased [Unknown]
  - Haematocrit decreased [Unknown]
  - Blood pressure diastolic increased [Unknown]
  - Red blood cell count decreased [Unknown]
  - Hypertension [Unknown]
  - Haemoglobin decreased [Unknown]
  - Band neutrophil count increased [Unknown]
  - Lymphocyte count decreased [Unknown]
  - Renal disorder [Not Recovered/Not Resolved]

NARRATIVE: CASE EVENT DATE: 20150818
